FAERS Safety Report 11730728 (Version 1)
Quarter: 2015Q4

REPORT INFORMATION
  Report Type: Spontaneous
  Country: US (occurrence: US)
  Receive Date: 20151110
  Receipt Date: 20151110
  Transmission Date: 20160304
  Serious: No
  Sender: FDA-Public Use
  Company Number: US-ELI_LILLY_AND_COMPANY-US201111008027

PATIENT
  Sex: Female

DRUGS (2)
  1. FORTEO [Suspect]
     Active Substance: TERIPARATIDE
     Indication: OSTEOPOROSIS
     Dosage: 20 UG, QD
     Dates: start: 201106
  2. FORTEO [Suspect]
     Active Substance: TERIPARATIDE
     Dosage: 20 UG, QD

REACTIONS (14)
  - Muscle atrophy [Unknown]
  - Synovial disorder [Unknown]
  - Malaise [Unknown]
  - Intentional product misuse [Unknown]
  - Swelling [Unknown]
  - Gait disturbance [Unknown]
  - Dysentery [Unknown]
  - Joint swelling [Unknown]
  - Bone disorder [Unknown]
  - Arthropathy [Unknown]
  - Peripheral swelling [Unknown]
  - Dysstasia [Unknown]
  - Pain in extremity [Unknown]
  - Headache [Unknown]
